FAERS Safety Report 4941897-6 (Version None)
Quarter: 2006Q1

REPORT INFORMATION
  Report Type: 
  Country: None (occurrence: None)
  Receive Date: 20060307
  Receipt Date: 20060222
  Transmission Date: 20060701
  Serious: Yes (Life-Threatening)
  Sender: FDA-Public Use
  Company Number: 2006-BP-02258RO

PATIENT
  Age: 80 Year
  Sex: Male

DRUGS (2)
  1. SALBUTAMOL (SALBUTAMOL) [Suspect]
     Indication: CHRONIC OBSTRUCTIVE PULMONARY DISEASE
     Dosage: IH
     Route: 055
  2. IPRATROPIUM BROMIDE [Suspect]
     Indication: CHRONIC OBSTRUCTIVE PULMONARY DISEASE
     Dosage: IH
     Route: 055

REACTIONS (2)
  - BRONCHOSPASM PARADOXICAL [None]
  - THERAPY NON-RESPONDER [None]
